FAERS Safety Report 8540039-8 (Version None)
Quarter: 2012Q3

REPORT INFORMATION
  Report Type: 
  Country: None (occurrence: None)
  Receive Date: 20120726
  Receipt Date: 20120717
  Transmission Date: 20120928
  Serious: Yes (Other)
  Sender: FDA-Public Use
  Company Number: US-ASTRAZENECA-2012SE50242

PATIENT
  Age: 61 Year
  Sex: Male

DRUGS (1)
  1. TOPROL-XL [Suspect]
     Route: 048

REACTIONS (4)
  - HEMIPARESIS [None]
  - CEREBROVASCULAR ACCIDENT [None]
  - CONFUSIONAL STATE [None]
  - CONVULSION [None]
